FAERS Safety Report 16071563 (Version 1)
Quarter: 2019Q1

REPORT INFORMATION
  Report Type: Spontaneous
  Country: US (occurrence: US)
  Receive Date: 20190213
  Receipt Date: 20190213
  Transmission Date: 20190418
  Serious: Yes (Other)
  Sender: FDA-Public Use
  Company Number: None

PATIENT
  Age: 78 Year
  Sex: Male
  Weight: 108.86 kg

DRUGS (31)
  1. CVS FF ANTI-ITCH LOTION [Concomitant]
  2. MELATONIN, 5 MG, PYRIDOXINE HCL, 10 MG, X1 [Concomitant]
  3. CLOBETASOL PROPIONATE CREAM, LOTION, 0.05%, AS NEEDED [Concomitant]
  4. MG CITRATE [Concomitant]
  5. VISINE OR EQUIVALENT AS NEEDED [Concomitant]
  6. ESSENTIAL ELECTROLYTES (C 100 MG, CA 50 MG, MG 25 MG, K75 MG, NA 53 MG [Concomitant]
  7. MONTELUKAST SODIUM (SINGULAIR), 10 MG EACH PM [Concomitant]
  8. LPRATROPIUM BROMIDE (ATROVENT) NASAL, INHALATION SOLUTION 0.03% 21 MEG [Concomitant]
  9. VOLTAREN, DICLOFENAC SODIUM TOPICAL GEL, 1%, WRIST, ~100 MG AM. + PM. [Concomitant]
  10. FLAX SEED [Concomitant]
     Active Substance: FLAX SEED
  11. OXYBUTYNIN CHLORIDE TAB 5MG [Suspect]
     Active Substance: OXYBUTYNIN CHLORIDE
     Indication: BLADDER DISORDER
     Dosage: ?          QUANTITY:1 DF DOSAGE FORM;?
     Route: 048
     Dates: start: 20190115, end: 20190206
  12. GLYCOLAX POWDER (POLYETHYLENE GLYCOL), 17G X1 [Concomitant]
  13. SYMBICORT (BUSESONIDO 80 MCG/FORMOTERAL FUMARATE DEHYDRATE 4.5 MCG [Concomitant]
  14. ADVAIR (FLUTICASONE PROPIONATE/SALMETEROL) [Concomitant]
  15. CERAVE FACIAL MOISTURIZING LOTION (SPF 30) AS NEEDED [Concomitant]
  16. TRIAMCINOLONE ACETONIDE 0.1% CREAM, LOTION AS NEEDED [Concomitant]
  17. MOMETASONE FUROATE CREAM 0.1%, TWICE DAILY FOR NIPPLE LESION [Concomitant]
  18. FLOMAX [Concomitant]
     Active Substance: TAMSULOSIN HYDROCHLORIDE
  19. ALLERCLEAR (LORATADINE), 10 MG X1; FLUTICASONE PROPIONATE NASAL SPRAY, [Concomitant]
  20. CERAVE MOISTURIZING LOTION AS NEEDED [Concomitant]
  21. CHLORHEXIDINE, 0.12% RINSE, RARELY AS NEEDED [Concomitant]
  22. NIZORAL (KETACONAZOLE) 2% CREAM AND SHAMPOO, TWICE DAILY [Concomitant]
  23. SILDENAFIL. [Concomitant]
     Active Substance: SILDENAFIL
  24. CA CITRATE [Concomitant]
  25. HYDROCORTISONE CREAM 1% AS NEEDED [Concomitant]
  26. AMLACTIN LOTION, LACTIC ACID NEUTRALIZED WITH AMMONIUM HYDROIDDE, 12%, [Concomitant]
  27. C, 1G, X2; ^CHIA SEED, 17 ML, X1 [Concomitant]
  28. DESENIDE CREAM, 0.05%, RARELY AS NEEDED [Concomitant]
  29. OLIVE OIL [Concomitant]
     Active Substance: OLIVE OIL
  30. AZELASTINE HCL (ASTELIN) [Concomitant]
  31. VITAMIN D3 [Concomitant]
     Active Substance: CHOLECALCIFEROL

REACTIONS (3)
  - Cataract [None]
  - Night blindness [None]
  - Diplopia [None]

NARRATIVE: CASE EVENT DATE: 20190130
